FAERS Safety Report 4472193-1 (Version None)
Quarter: 2004Q4

REPORT INFORMATION
  Report Type: 
  Country: None (occurrence: None)
  Receive Date: 20041012
  Receipt Date: 20041006
  Transmission Date: 20050328
  Serious: Yes (Hospitalization)
  Sender: FDA-Public Use
  Company Number: ES-MERCK-0410ESP00044

PATIENT
  Age: 58 Year
  Sex: Female

DRUGS (1)
  1. VIOXX [Suspect]
     Indication: OSTEOARTHRITIS
     Route: 048
     Dates: start: 20000101, end: 20020101

REACTIONS (5)
  - ARRHYTHMIA [None]
  - BLOOD GLUCOSE INCREASED [None]
  - CARDIAC VALVE DISEASE [None]
  - HYPERTENSION [None]
  - TACHYCARDIA [None]
